FAERS Safety Report 16687825 (Version 1)
Quarter: 2019Q3

REPORT INFORMATION
  Report Type: Spontaneous
  Country: US (occurrence: US)
  Receive Date: 20190624
  Receipt Date: 20190624
  Transmission Date: 20191004
  Serious: Yes (Hospitalization)
  Sender: FDA-Public Use
  Company Number: None

PATIENT
  Age: 75 Year
  Sex: Male

DRUGS (1)
  1. REVLIMID [Suspect]
     Active Substance: LENALIDOMIDE
     Indication: PLASMA CELL MYELOMA
     Route: 048
     Dates: start: 201902, end: 201905

REACTIONS (4)
  - Therapy cessation [None]
  - Pulmonary embolism [None]
  - Bacteraemia [None]
  - Ill-defined disorder [None]

NARRATIVE: CASE EVENT DATE: 20190311
